FAERS Safety Report 5384748-0 (Version None)
Quarter: 2007Q3

REPORT INFORMATION
  Report Type: 
  Country: None (occurrence: None)
  Receive Date: 20070711
  Receipt Date: 20070629
  Transmission Date: 20080115
  Serious: Yes (Other)
  Sender: FDA-Public Use
  Company Number: DK-PFIZER INC-2007054275

PATIENT
  Sex: Male

DRUGS (1)
  1. ZELDOX (IM) [Suspect]
     Indication: PSYCHOTIC DISORDER
     Route: 042
     Dates: start: 20070101, end: 20070101

REACTIONS (1)
  - ATRIAL FIBRILLATION [None]
